FAERS Safety Report 7551559-7 (Version None)
Quarter: 2011Q2

REPORT INFORMATION
  Report Type: 
  Country: None (occurrence: None)
  Receive Date: 20110616
  Receipt Date: 20110606
  Transmission Date: 20111010
  Serious: Yes (Other)
  Sender: FDA-Public Use
  Company Number: US-NOVOPROD-329406

PATIENT
  Sex: Female
  Weight: 97.959 kg

DRUGS (9)
  1. GLYBURIDE [Concomitant]
     Indication: TYPE 2 DIABETES MELLITUS
     Dosage: 10 MG, QD
     Route: 048
  2. IBUPROFEN (ADVIL) [Suspect]
     Indication: BACK PAIN
     Dosage: 1200 MG, QD
     Route: 048
     Dates: end: 20110501
  3. VICTOZA [Suspect]
     Indication: TYPE 2 DIABETES MELLITUS
     Dosage: 0.6 MG, QD
     Route: 058
     Dates: start: 20110301
  4. COUMADIN [Concomitant]
     Indication: PRODUCT USED FOR UNKNOWN INDICATION
  5. TYLENOL (CAPLET) [Concomitant]
     Indication: BACK PAIN
     Dosage: 650 MG, QD
     Route: 048
  6. CARVEDILOL [Concomitant]
     Indication: HYPERTENSION
     Dosage: 25 MG, QD
     Route: 048
  7. HYDROCHLOROTHIAZIDE [Concomitant]
     Indication: HYPERTENSION
     Dosage: 12.5 MG, QD
     Route: 048
  8. VYTORIN [Concomitant]
     Indication: BLOOD CHOLESTEROL INCREASED
     Dosage: 1 TAB, QD
     Route: 048
  9. FENOFIBRATE [Concomitant]
     Indication: BLOOD CHOLESTEROL INCREASED
     Dosage: 13.4 MG, QD
     Route: 048

REACTIONS (1)
  - RENAL IMPAIRMENT [None]
